FAERS Safety Report 12548387 (Version 1)
Quarter: 2016Q3

REPORT INFORMATION
  Report Type: Spontaneous
  Country: US (occurrence: US)
  Receive Date: 20160712
  Receipt Date: 20160712
  Transmission Date: 20161109
  Serious: Yes (Other)
  Sender: FDA-Public Use
  Company Number: US-PFIZER INC-2016325158

PATIENT
  Sex: Male

DRUGS (1)
  1. IBRANCE [Suspect]
     Active Substance: PALBOCICLIB
     Dosage: UNK, CYCLIC
     Dates: start: 20160104, end: 20160607

REACTIONS (8)
  - Renal colic [Unknown]
  - Pupillary disorder [Unknown]
  - Haematoma [Recovered/Resolved]
  - Contusion [Unknown]
  - Nephrolithiasis [Unknown]
  - Product use issue [Unknown]
  - Pain in extremity [Unknown]
  - Malaise [Unknown]

NARRATIVE: CASE EVENT DATE: 2016
